FAERS Safety Report 10411776 (Version 1)
Quarter: 2014Q2

REPORT INFORMATION
  Report Type: Spontaneous
  Country: US (occurrence: None)
  Receive Date: 20140604
  Receipt Date: 20140604
  Transmission Date: 20141212
  Serious: Yes (Other)
  Sender: FDA-Public Use
  Company Number: 163-POMAL-14041800

PATIENT
  Age: 64 Year
  Sex: Male
  Weight: 92 kg

DRUGS (14)
  1. POMALYST [Suspect]
     Indication: PLASMA CELL MYELOMA
     Dosage: 2 MG, 21 IN 28 D, PO
     Route: 048
     Dates: start: 201308, end: 2014
  2. DIMETHYL SULFOXIDE) (DIMETHYL SULFOXIDE0 [Concomitant]
  3. DEXAMETHASONE (DEXAMETHASONE) [Concomitant]
  4. ACYCLOVIR (ACICLOVIR) [Concomitant]
  5. ALLOPURINOL (ALLOPURINOL) [Concomitant]
  6. AMLODIPINE (AMLODIPINE) [Concomitant]
  7. FUROSEMIDE (FUROSEMIDE) [Concomitant]
  8. GADAPENTIN (GABAPENTIN) [Concomitant]
  9. INSULIN (INSULIN) [Concomitant]
  10. LOVASTATIN (LOVASTATIN) [Concomitant]
  11. METOPROLOL (METOPROLOL) [Concomitant]
  12. OXYCODONE (OXYCODONE) [Concomitant]
  13. WARFARIN (WARFARIN) [Concomitant]
  14. CARFILZOMIB (CARFILZOMIB) [Concomitant]

REACTIONS (5)
  - Weight decreased [None]
  - Renal failure acute [None]
  - Fatigue [None]
  - Neuropathy peripheral [None]
  - Decreased appetite [None]
